FAERS Safety Report 8025383-5 (Version None)
Quarter: 2012Q1

REPORT INFORMATION
  Report Type: 
  Country: None (occurrence: None)
  Receive Date: 20120105
  Receipt Date: 20120102
  Transmission Date: 20120608
  Serious: Yes (Other)
  Sender: FDA-Public Use
  Company Number: AR-PFIZER INC-2011315002

PATIENT
  Age: 62 Year
  Sex: Male
  Weight: 67 kg

DRUGS (2)
  1. METFORMIN [Concomitant]
     Dosage: UNK
  2. ZOLOFT [Suspect]
     Indication: DEPRESSION
     Dosage: 50 MG, SINGLE
     Route: 048
     Dates: start: 20110801, end: 20110801

REACTIONS (2)
  - DIARRHOEA HAEMORRHAGIC [None]
  - VOMITING [None]
